FAERS Safety Report 10094063 (Version 2)
Quarter: 2014Q2

REPORT INFORMATION
  Report Type: Spontaneous
  Country: US (occurrence: US)
  Receive Date: 20140422
  Receipt Date: 20140530
  Transmission Date: 20141212
  Serious: No
  Sender: FDA-Public Use
  Company Number: US-009507513-1404USA006546

PATIENT
  Age: 22 Year
  Sex: Female
  Weight: 81.63 kg

DRUGS (3)
  1. NEXPLANON [Suspect]
     Dosage: 68 MG (1 ROD), UNK
     Route: 059
     Dates: start: 20130325, end: 20140430
  2. IBUPROFEN [Concomitant]
     Indication: PAIN
     Dosage: 1 DF, TID
     Route: 048
  3. IBUPROFEN [Concomitant]
     Dosage: 3 TIMNES A DAY AS NEEDED
     Route: 048

REACTIONS (2)
  - Device kink [Not Recovered/Not Resolved]
  - No adverse event [Unknown]
